FAERS Safety Report 13622553 (Version 1)
Quarter: 2017Q2

REPORT INFORMATION
  Report Type: Spontaneous
  Country: US (occurrence: US)
  Receive Date: 20170607
  Receipt Date: 20170607
  Transmission Date: 20170830
  Serious: Yes (Other)
  Sender: FDA-Public Use
  Company Number: US-ROCHE-404714

PATIENT
  Age: 48 Year
  Sex: Male

DRUGS (10)
  1. FUZEON [Suspect]
     Active Substance: ENFUVIRTIDE
     Dosage: STOPPED AFTER APPROXIMATELY SIX DOSES.
     Route: 065
     Dates: start: 200404, end: 200404
  2. FUZEON [Suspect]
     Active Substance: ENFUVIRTIDE
     Indication: HIV INFECTION
     Route: 065
     Dates: start: 200405, end: 200405
  3. METHADONE [Concomitant]
     Active Substance: METHADONE HYDROCHLORIDE
  4. FUZEON [Suspect]
     Active Substance: ENFUVIRTIDE
     Route: 065
  5. TENOFOVIR [Concomitant]
     Active Substance: TENOFOVIR
     Route: 048
  6. EMTRICITABINE [Concomitant]
     Active Substance: EMTRICITABINE
     Route: 048
  7. FOSAMPRENAVIR [Concomitant]
     Active Substance: FOSAMPRENAVIR
     Route: 048
  8. INDINAVIR [Concomitant]
     Active Substance: INDINAVIR
     Route: 048
  9. GABAPENTIN. [Concomitant]
     Active Substance: GABAPENTIN
     Indication: NEUROPATHY PERIPHERAL
  10. RITONAVIR. [Concomitant]
     Active Substance: RITONAVIR
     Route: 065
     Dates: start: 200405

REACTIONS (1)
  - Hypersensitivity [Recovered/Resolved]

NARRATIVE: CASE EVENT DATE: 200405
